FAERS Safety Report 9158078 (Version 1)
Quarter: 2013Q1

REPORT INFORMATION
  Report Type: Spontaneous
  Country: US (occurrence: None)
  Receive Date: 20130211
  Receipt Date: 20130211
  Transmission Date: 20140127
  Serious: Yes (Other)
  Sender: FDA-Public Use
  Company Number: US-ALKEM-000006

PATIENT
  Age: 34 Year
  Sex: Female

DRUGS (1)
  1. GABAPENTIN (GABAPENTIN) [Suspect]
     Indication: ANXIETY
     Dosage: 100.00-MG-3.00/TIMES PER-1.0DAYS

REACTIONS (4)
  - Exposure during pregnancy [None]
  - Premature delivery [None]
  - Labour complication [None]
  - Off label use [None]
